FAERS Safety Report 9843382 (Version 2)
Quarter: 2013Q4

REPORT INFORMATION
  Report Type: Spontaneous
  Country: US (occurrence: None)
  Receive Date: 20131127
  Receipt Date: 20131127
  Transmission Date: 20140711
  Serious: Yes (Other)
  Sender: FDA-Public Use
  Company Number: 218584

PATIENT
  Sex: Female

DRUGS (1)
  1. PICATO (0.05%, GEL) [Suspect]
     Indication: ACTINIC KERATOSIS
     Route: 061
     Dates: start: 20120808, end: 20120809

REACTIONS (5)
  - Erythema [None]
  - Periorbital oedema [None]
  - Eyelid oedema [None]
  - Off label use [None]
  - Incorrect product storage [None]
